FAERS Safety Report 16983735 (Version 1)
Quarter: 2019Q4

REPORT INFORMATION
  Report Type: Spontaneous
  Country: AU (occurrence: AU)
  Receive Date: 20191101
  Receipt Date: 20191101
  Transmission Date: 20200122
  Serious: Yes (Other)
  Sender: FDA-Public Use
  Company Number: AU-RECKITT BENCKISER HEALTHCARE INT LIMITED-RB-91373-2019

PATIENT
  Sex: Male

DRUGS (1)
  1. DETTOL FIRST AID ANTISEPTIC [Suspect]
     Active Substance: CHLOROXYLENOL
     Indication: WOUND TREATMENT
     Dosage: UNK (CLEANED SMALL CUT ON LEG WITH UNKNOWN AMOUNT)
     Route: 061

REACTIONS (3)
  - Amputation [Unknown]
  - Therapeutic product ineffective [Not Recovered/Not Resolved]
  - Necrotising fasciitis [Unknown]
